FAERS Safety Report 5034364-5 (Version None)
Quarter: 2006Q2

REPORT INFORMATION
  Report Type: 
  Country: None (occurrence: None)
  Receive Date: 20060626
  Receipt Date: 20060614
  Transmission Date: 20061013
  Serious: Yes (Death, Life-Threatening, Hospitalization)
  Sender: FDA-Public Use
  Company Number: TR-ROCHE-451674

PATIENT
  Age: 61 Year
  Sex: Female

DRUGS (4)
  1. CAPECITABINE [Suspect]
     Indication: BREAST CANCER
     Route: 048
     Dates: start: 20060601, end: 20060607
  2. IXABEPILONE [Suspect]
     Indication: BREAST CANCER
     Route: 042
     Dates: start: 20060601, end: 20060601
  3. RANITIDINE [Concomitant]
     Dates: start: 20060601, end: 20060601
  4. SYSTRAL [Concomitant]
     Dates: start: 20060601, end: 20060601

REACTIONS (3)
  - DIARRHOEA [None]
  - NEUTROPENIA [None]
  - SEPTIC SHOCK [None]
